FAERS Safety Report 16285138 (Version 4)
Quarter: 2020Q1

REPORT INFORMATION
  Report Type: Spontaneous
  Country: US (occurrence: US)
  Receive Date: 20190508
  Receipt Date: 20200103
  Transmission Date: 20200409
  Serious: Yes (Death, Hospitalization, Other)
  Sender: FDA-Public Use
  Company Number: US-ASTRAZENECA-2019SE63206

PATIENT
  Age: 18359 Day
  Sex: Male
  Weight: 117.9 kg

DRUGS (72)
  1. PROTONIX [Suspect]
     Active Substance: PANTOPRAZOLE SODIUM
     Dosage: 40.0MG UNKNOWN
     Route: 065
     Dates: start: 20160218
  2. ROLAIDS [Concomitant]
     Active Substance: CALCIUM CARBONATE\MAGNESIUM HYDROXIDE
  3. HYDROCODONE [Concomitant]
     Active Substance: HYDROCODONE
     Dosage: 10-325 MG
     Route: 048
     Dates: start: 20180226
  4. CILOSTAZOL. [Concomitant]
     Active Substance: CILOSTAZOL
     Dates: start: 20070412
  5. PROAIR HFA [Concomitant]
     Active Substance: ALBUTEROL SULFATE
  6. COUMADIN [Concomitant]
     Active Substance: WARFARIN SODIUM
  7. POLYETHYLENE GLYCOL [Concomitant]
     Active Substance: POLYETHYLENE GLYCOLS
  8. SODIUM CHLORIDE. [Concomitant]
     Active Substance: SODIUM CHLORIDE
  9. LACTATED RINGERS SOLUTION [Concomitant]
     Active Substance: CALCIUM CHLORIDE\POTASSIUM CHLORIDE\SODIUM CHLORIDE\SODIUM LACTATE
  10. GLUCAGON. [Concomitant]
     Active Substance: GLUCAGON
  11. LORTAB [Concomitant]
     Active Substance: ACETAMINOPHEN\HYDROCODONE BITARTRATE
  12. PROTONIX [Suspect]
     Active Substance: PANTOPRAZOLE SODIUM
     Dosage: 40.0MG UNKNOWN
     Route: 065
     Dates: start: 20070723
  13. TAMSULOSIN [Concomitant]
     Active Substance: TAMSULOSIN
  14. LIPITOR [Concomitant]
     Active Substance: ATORVASTATIN CALCIUM
     Dates: start: 20070417
  15. LYRICA [Concomitant]
     Active Substance: PREGABALIN
     Route: 048
  16. AMOXICILLIN. [Concomitant]
     Active Substance: AMOXICILLIN
     Dates: start: 20161026
  17. ACETAMINOPHEN. [Concomitant]
     Active Substance: ACETAMINOPHEN
  18. ONDANSETRON [Concomitant]
     Active Substance: ONDANSETRON
  19. HEPARIN [Concomitant]
     Active Substance: HEPARIN SODIUM
  20. FENTANYL CITRATE. [Concomitant]
     Active Substance: FENTANYL CITRATE
  21. INSULIN [Concomitant]
     Active Substance: INSULIN NOS
  22. LIDOCAINE. [Concomitant]
     Active Substance: LIDOCAINE
  23. IMDUR [Concomitant]
     Active Substance: ISOSORBIDE MONONITRATE
  24. NEXIUM [Suspect]
     Active Substance: ESOMEPRAZOLE MAGNESIUM
     Route: 048
     Dates: start: 2010, end: 2011
  25. PROTONIX [Suspect]
     Active Substance: PANTOPRAZOLE SODIUM
     Dosage: 40.0MG UNKNOWN
     Route: 065
     Dates: start: 20070919
  26. FOLIC ACID. [Concomitant]
     Active Substance: FOLIC ACID
     Dates: start: 20070518
  27. MIDODRINE [Concomitant]
     Active Substance: MIDODRINE
     Route: 048
     Dates: start: 20180226
  28. MORPHINE [Concomitant]
     Active Substance: MORPHINE
  29. HYDRALAZINE [Concomitant]
     Active Substance: HYDRALAZINE HYDROCHLORIDE
  30. CYANOCOBALAMIN. [Concomitant]
     Active Substance: CYANOCOBALAMIN
     Dosage: 1000 MCG 2 TABLETS EVERY 2 WEEKS
  31. DULOXETINE. [Concomitant]
     Active Substance: DULOXETINE
     Dosage: ONE CAPSULE BY ORAL ROUTE EVERY WEEK
  32. NEXIUM [Suspect]
     Active Substance: ESOMEPRAZOLE MAGNESIUM
     Route: 048
     Dates: start: 20100322
  33. CELEBREX [Concomitant]
     Active Substance: CELECOXIB
     Dates: start: 20051114
  34. LEXAPRO [Concomitant]
     Active Substance: ESCITALOPRAM OXALATE
     Dates: start: 20071128
  35. MAGNESIUM OXIDE. [Concomitant]
     Active Substance: MAGNESIUM OXIDE
  36. AMIODARONE [Concomitant]
     Active Substance: AMIODARONE
  37. ZOFRAN [Concomitant]
     Active Substance: ONDANSETRON HYDROCHLORIDE
  38. FERROUS SULFATE. [Concomitant]
     Active Substance: FERROUS SULFATE
  39. MICARDIS [Concomitant]
     Active Substance: TELMISARTAN
     Dosage: TAKE 0.5 TABLET BY ORAL ROUTE EVERY MORNING
  40. PROTONIX [Suspect]
     Active Substance: PANTOPRAZOLE SODIUM
     Dosage: 40.0MG UNKNOWN
     Route: 065
     Dates: start: 2007, end: 2008
  41. SYMBICORT [Concomitant]
     Active Substance: BUDESONIDE\FORMOTEROL FUMARATE DIHYDRATE
     Dates: start: 20161026
  42. TUMS [Concomitant]
     Active Substance: CALCIUM CARBONATE
  43. PROMETHAZINE [Concomitant]
     Active Substance: PROMETHAZINE HYDROCHLORIDE
     Indication: VOMITING
     Route: 048
     Dates: start: 20180226
  44. PIOGLITAZONE. [Concomitant]
     Active Substance: PIOGLITAZONE
  45. METOPROLOL TARTRATE. [Concomitant]
     Active Substance: METOPROLOL TARTRATE
  46. MIDAZOLAM HYDROCHLORIDE. [Concomitant]
     Active Substance: MIDAZOLAM HYDROCHLORIDE
  47. BUDESONIDE. [Concomitant]
     Active Substance: BUDESONIDE
  48. PLAVIX [Concomitant]
     Active Substance: CLOPIDOGREL BISULFATE
  49. NEXIUM [Suspect]
     Active Substance: ESOMEPRAZOLE MAGNESIUM
     Dosage: 1 EVERY DAY
     Route: 048
     Dates: start: 20120313
  50. SIMVASTATIN. [Concomitant]
     Active Substance: SIMVASTATIN
  51. ACTOS [Concomitant]
     Active Substance: PIOGLITAZONE HYDROCHLORIDE
     Dosage: TAKE TABLET BY ORAL ROUTE EVERY DAY
     Dates: start: 20070412
  52. FORMOTEROL [Concomitant]
     Active Substance: FORMOTEROL
  53. ERGOCALCIFEROL. [Concomitant]
     Active Substance: ERGOCALCIFEROL
  54. ROCALTROL [Concomitant]
     Active Substance: CALCITRIOL
     Dosage: TAKE 1 CAPSULEBY ORAL ROUTE 3 TIMES EVERY WEEK
  55. NEXIUM [Suspect]
     Active Substance: ESOMEPRAZOLE MAGNESIUM
     Dosage: TAKE 1 CAPSULE BY ORAL ROUTE EVERY DAY
     Route: 048
     Dates: start: 20121010
  56. PROTONIX [Suspect]
     Active Substance: PANTOPRAZOLE SODIUM
     Dosage: GENERIC40.0MG UNKNOWN
     Route: 065
     Dates: start: 2008, end: 2010
  57. HYDROCODONE [Concomitant]
     Active Substance: HYDROCODONE
     Dosage: 10-325 MG
     Route: 048
     Dates: start: 20051114
  58. DIPHENHYDRAMINE. [Concomitant]
     Active Substance: DIPHENHYDRAMINE
  59. VANCOMYCIN [Concomitant]
     Active Substance: VANCOMYCIN
  60. OXYCODONE ER [Concomitant]
     Active Substance: OXYCODONE
     Dosage: ONE TAB BY ORAL ROUTETWO TIMES EVERY DAY
  61. PROTONIX [Suspect]
     Active Substance: PANTOPRAZOLE SODIUM
     Dosage: GENERIC UNKNOWN
     Route: 065
     Dates: start: 20090626
  62. MAALOX ANTACID [Concomitant]
     Active Substance: ALUMINUM HYDROXIDE\DIMETHICONE\MAGNESIUM HYDROXIDE
  63. FUROSEMIDE. [Concomitant]
     Active Substance: FUROSEMIDE
     Dates: start: 20070412
  64. LANTUS [Concomitant]
     Active Substance: INSULIN GLARGINE
     Dosage: 100 UNIT/M
     Dates: start: 20070412
  65. ELIQUIS [Concomitant]
     Active Substance: APIXABAN
  66. PROMETHAZINE [Concomitant]
     Active Substance: PROMETHAZINE HYDROCHLORIDE
     Indication: NAUSEA
     Route: 048
     Dates: start: 20180226
  67. ASPIRIN. [Concomitant]
     Active Substance: ASPIRIN
     Route: 048
  68. FLUOXETINE [Concomitant]
     Active Substance: FLUOXETINE HYDROCHLORIDE
  69. MELATONIN [Concomitant]
     Active Substance: MELATONIN
  70. NICOTINE. [Concomitant]
     Active Substance: NICOTINE
  71. NOREPINEPHRINE BITARTRATE. [Concomitant]
     Active Substance: NOREPINEPHRINE BITARTRATE
  72. DULERA [Concomitant]
     Active Substance: FORMOTEROL FUMARATE DIHYDRATE\MOMETASONE FUROATE

REACTIONS (7)
  - Chronic kidney disease [Not Recovered/Not Resolved]
  - Renal failure [Not Recovered/Not Resolved]
  - Nephrogenic anaemia [Unknown]
  - Hyperparathyroidism secondary [Unknown]
  - Acute kidney injury [Unknown]
  - Chronic kidney disease-mineral and bone disorder [Unknown]
  - End stage renal disease [Unknown]

NARRATIVE: CASE EVENT DATE: 20071028
